FAERS Safety Report 19221443 (Version 2)
Quarter: 2021Q2

REPORT INFORMATION
  Report Type: Spontaneous
  Country: US (occurrence: US)
  Receive Date: 20210505
  Receipt Date: 20210609
  Transmission Date: 20210717
  Serious: No
  Sender: FDA-Public Use
  Company Number: US-BAYER-2021-130225

PATIENT
  Age: 79 Year
  Sex: Female

DRUGS (1)
  1. CLIMARA [Suspect]
     Active Substance: ESTRADIOL
     Dosage: UNK, OW
     Route: 062

REACTIONS (4)
  - Poor quality sleep [None]
  - Hot flush [None]
  - Product adhesion issue [None]
  - Product quality issue [None]
